FAERS Safety Report 7141730-0 (Version None)
Quarter: 2010Q4

REPORT INFORMATION
  Report Type: 
  Country: None (occurrence: None)
  Receive Date: 20101202
  Receipt Date: 20101202
  Transmission Date: 20110411
  Serious: Yes (Other)
  Sender: FDA-Public Use
  Company Number: None

PATIENT
  Sex: Female
  Weight: 49.8957 kg

DRUGS (1)
  1. SINGULAIR [Suspect]
     Indication: ASTHMA
     Dosage: 1 TABLET DAY ORAL
     Route: 048
     Dates: start: 20101029, end: 20101111

REACTIONS (9)
  - ABDOMINAL PAIN UPPER [None]
  - AGITATION [None]
  - DRY MOUTH [None]
  - GLOSSODYNIA [None]
  - MUSCULOSKELETAL PAIN [None]
  - NECK PAIN [None]
  - PAIN IN EXTREMITY [None]
  - SLEEP DISORDER [None]
  - THIRST [None]
